FAERS Safety Report 6679173-6 (Version None)
Quarter: 2010Q2

REPORT INFORMATION
  Report Type: 
  Country: None (occurrence: None)
  Receive Date: 20100402
  Receipt Date: 20100122
  Transmission Date: 20101027
  Serious: Yes (Hospitalization)
  Sender: FDA-Public Use
  Company Number: 2010009180

PATIENT
  Sex: Female

DRUGS (3)
  1. ARGATROBAN [Suspect]
     Indication: HEPARIN-INDUCED THROMBOCYTOPENIA
     Dosage: 0.94 MCG/G/MIN, INTRAVENOUS
     Route: 042
     Dates: start: 20100113, end: 20100119
  2. ARGATROBAN [Suspect]
     Indication: PROPHYLAXIS
     Dosage: 0.94 MCG/G/MIN, INTRAVENOUS
     Route: 042
     Dates: start: 20100113, end: 20100119
  3. WARFARIN SODIUM [Concomitant]

REACTIONS (2)
  - ACTIVATED PARTIAL THROMBOPLASTIN TIME PROLONGED [None]
  - INTERNATIONAL NORMALISED RATIO INCREASED [None]
